FAERS Safety Report 9013310 (Version 1)
Quarter: 2013Q1

REPORT INFORMATION
  Report Type: Spontaneous
  Country: US (occurrence: None)
  Receive Date: 20130107
  Receipt Date: 20130107
  Transmission Date: 20140127
  Serious: Yes (Other)
  Sender: FDA-Public Use
  Company Number: None

PATIENT
  Age: 55 Year
  Sex: 0
  Weight: 97.52 kg

DRUGS (1)
  1. SPIRIVA HANDIHALER [Suspect]
     Indication: ASTHMA
     Dosage: INHALE 2 BID INHAL
     Route: 055

REACTIONS (2)
  - Device malfunction [None]
  - Capsule physical issue [None]
